FAERS Safety Report 23599456 (Version 1)
Quarter: 2024Q1

REPORT INFORMATION
  Report Type: Spontaneous
  Country: US (occurrence: US)
  Receive Date: 20240306
  Receipt Date: 20240306
  Transmission Date: 20240410
  Serious: Yes (Hospitalization)
  Sender: FDA-Public Use
  Company Number: US-HIKMA PHARMACEUTICALS USA INC.-US-H14001-24-01728

PATIENT
  Sex: Male

DRUGS (1)
  1. TESTOSTERONE CYPIONATE [Suspect]
     Active Substance: TESTOSTERONE CYPIONATE
     Indication: Hypogonadism
     Dosage: 200 MILLIGRAM, WEEKLY
     Route: 065

REACTIONS (9)
  - Asthenia [Unknown]
  - Apathy [Unknown]
  - Anxiety [Unknown]
  - Depression [Unknown]
  - Dry skin [Unknown]
  - Fatigue [Unknown]
  - Drug ineffective [Unknown]
  - Blood oestrogen decreased [Unknown]
  - Incorrect dose administered [Unknown]
